FAERS Safety Report 24686343 (Version 1)
Quarter: 2024Q4

REPORT INFORMATION
  Report Type: Spontaneous
  Country: AR (occurrence: AR)
  Receive Date: 20241202
  Receipt Date: 20241202
  Transmission Date: 20250114
  Serious: Yes (Other)
  Sender: PFIZER
  Company Number: AR-PFIZER INC-202400312047

PATIENT
  Age: 80 Year
  Sex: Female

DRUGS (2)
  1. IBRANCE [Suspect]
     Active Substance: PALBOCICLIB
     Indication: Breast cancer metastatic
     Dosage: 125 MG, CYCLIC (SCHEME 3X1)
     Dates: start: 20191115, end: 20241003
  2. FULVESTRANT [Concomitant]
     Active Substance: FULVESTRANT
     Dosage: UNK

REACTIONS (3)
  - Rib fracture [Not Recovered/Not Resolved]
  - Aggression [Not Recovered/Not Resolved]
  - Malnutrition [Not Recovered/Not Resolved]

NARRATIVE: CASE EVENT DATE: 20241101
